FAERS Safety Report 9886690 (Version 1)
Quarter: 2014Q1

REPORT INFORMATION
  Report Type: Report from Study
  Country: BR (occurrence: BR)
  Receive Date: 20140210
  Receipt Date: 20140210
  Transmission Date: 20141002
  Serious: Yes (Death)
  Sender: FDA-Public Use
  Company Number: PHHY2014BR015562

PATIENT
  Age: 82 Year
  Sex: Female
  Weight: 56 kg

DRUGS (5)
  1. DIOVAN AMLO FIX [Suspect]
     Indication: HYPERTENSION
     Dosage: 1 DF (160MG VALS+5MG AMLO), DAILY
     Route: 048
     Dates: end: 20140119
  2. METFORMIN [Concomitant]
     Indication: DIABETES MELLITUS
     Dosage: UNK UKN, UNK
     Dates: end: 20140119
  3. NEO FOLICO [Concomitant]
     Indication: ANAEMIA
     Dosage: UNK UKN, UNK
     Dates: end: 20140119
  4. FERROUS SULPHATE [Concomitant]
     Indication: ANAEMIA
     Dosage: UNK UKN, UNK
     Dates: end: 20140119
  5. HYDANTAL [Concomitant]
     Indication: CONVULSION
     Dosage: UNK UKN, UNK
     Dates: end: 20140119

REACTIONS (1)
  - Cardio-respiratory arrest [Fatal]
